FAERS Safety Report 8576218-3 (Version None)
Quarter: 2012Q3

REPORT INFORMATION
  Report Type: 
  Country: None (occurrence: None)
  Receive Date: 20120724
  Receipt Date: 20120711
  Transmission Date: 20120928
  Serious: Yes (Hospitalization, Other)
  Sender: FDA-Public Use
  Company Number: 1347196

PATIENT
  Age: 13 Year
  Sex: Female
  Weight: 55 kg

DRUGS (8)
  1. MERCAPTOPURINE [Concomitant]
  2. METHOTREXATE [Suspect]
     Indication: PRODUCT USED FOR UNKNOWN INDICATION
     Dosage: 5000MG/M2, ONCE, INTRAVENOUS
     Route: 042
  3. COTRIM [Concomitant]
  4. LETROZOLE [Concomitant]
  5. VINCRISTINE [Concomitant]
  6. CALCIUM CARBONATE [Concomitant]
  7. LEUPROLIDE ACETATE [Concomitant]
  8. VITAMIN D [Concomitant]

REACTIONS (11)
  - POSTURING [None]
  - ASTHENIA [None]
  - APHASIA [None]
  - EYE MOVEMENT DISORDER [None]
  - SEIZURE LIKE PHENOMENA [None]
  - MUSCULAR WEAKNESS [None]
  - MONOPARESIS [None]
  - TOXICITY TO VARIOUS AGENTS [None]
  - LEUKOENCEPHALOPATHY [None]
  - MOVEMENT DISORDER [None]
  - TACHYCARDIA [None]
